FAERS Safety Report 9503855 (Version 1)
Quarter: 2013Q3

REPORT INFORMATION
  Report Type: Spontaneous
  Country: CN (occurrence: CN)
  Receive Date: 20130906
  Receipt Date: 20130906
  Transmission Date: 20140515
  Serious: Yes (Death, Other)
  Sender: FDA-Public Use
  Company Number: CN-JNJFOC-20130813755

PATIENT
  Sex: 0

DRUGS (90)
  1. DOXORUBICIN [Suspect]
     Indication: PLASMA CELL MYELOMA
     Route: 042
  2. DOXORUBICIN [Suspect]
     Indication: MANTLE CELL LYMPHOMA
     Route: 042
  3. DOXORUBICIN [Suspect]
     Indication: ACUTE LYMPHOCYTIC LEUKAEMIA
     Route: 042
  4. DOXORUBICIN [Suspect]
     Indication: B-CELL LYMPHOMA
     Route: 042
  5. DOXORUBICIN [Suspect]
     Indication: B-CELL SMALL LYMPHOCYTIC LYMPHOMA
     Route: 042
  6. DOXORUBICIN [Suspect]
     Indication: CHRONIC LYMPHOCYTIC LEUKAEMIA
     Route: 042
  7. DOXORUBICIN [Suspect]
     Indication: LYMPHOMA
     Route: 042
  8. DOXORUBICIN [Suspect]
     Indication: DIFFUSE LARGE B-CELL LYMPHOMA
     Route: 042
  9. DOXORUBICIN [Suspect]
     Indication: NON-HODGKIN^S LYMPHOMA
     Route: 042
  10. DOXORUBICIN [Suspect]
     Indication: ACUTE MYELOID LEUKAEMIA
     Route: 042
  11. BENDAMUSTINE [Suspect]
     Indication: PLASMA CELL MYELOMA
     Route: 065
  12. BENDAMUSTINE [Suspect]
     Indication: MANTLE CELL LYMPHOMA
     Route: 065
  13. BENDAMUSTINE [Suspect]
     Indication: ACUTE LYMPHOCYTIC LEUKAEMIA
     Route: 065
  14. BENDAMUSTINE [Suspect]
     Indication: B-CELL LYMPHOMA
     Route: 065
  15. BENDAMUSTINE [Suspect]
     Indication: B-CELL SMALL LYMPHOCYTIC LYMPHOMA
     Route: 065
  16. BENDAMUSTINE [Suspect]
     Indication: CHRONIC LYMPHOCYTIC LEUKAEMIA
     Route: 065
  17. BENDAMUSTINE [Suspect]
     Indication: LYMPHOMA
     Route: 065
  18. BENDAMUSTINE [Suspect]
     Indication: DIFFUSE LARGE B-CELL LYMPHOMA
     Route: 065
  19. BENDAMUSTINE [Suspect]
     Indication: NON-HODGKIN^S LYMPHOMA
     Route: 065
  20. BENDAMUSTINE [Suspect]
     Indication: ACUTE MYELOID LEUKAEMIA
     Route: 065
  21. RITUXIMAB [Suspect]
     Indication: PLASMA CELL MYELOMA
     Route: 065
  22. RITUXIMAB [Suspect]
     Indication: MANTLE CELL LYMPHOMA
     Route: 065
  23. RITUXIMAB [Suspect]
     Indication: ACUTE LYMPHOCYTIC LEUKAEMIA
     Route: 065
  24. RITUXIMAB [Suspect]
     Indication: B-CELL LYMPHOMA
     Route: 065
  25. RITUXIMAB [Suspect]
     Indication: B-CELL SMALL LYMPHOCYTIC LYMPHOMA
     Route: 065
  26. RITUXIMAB [Suspect]
     Indication: CHRONIC LYMPHOCYTIC LEUKAEMIA
     Route: 065
  27. RITUXIMAB [Suspect]
     Indication: LYMPHOMA
     Route: 065
  28. RITUXIMAB [Suspect]
     Indication: DIFFUSE LARGE B-CELL LYMPHOMA
     Route: 065
  29. RITUXIMAB [Suspect]
     Indication: NON-HODGKIN^S LYMPHOMA
     Route: 065
  30. RITUXIMAB [Suspect]
     Indication: ACUTE MYELOID LEUKAEMIA
     Route: 065
  31. VINCRISTINE [Suspect]
     Indication: PLASMA CELL MYELOMA
     Route: 065
  32. VINCRISTINE [Suspect]
     Indication: MANTLE CELL LYMPHOMA
     Route: 065
  33. VINCRISTINE [Suspect]
     Indication: ACUTE LYMPHOCYTIC LEUKAEMIA
     Route: 065
  34. VINCRISTINE [Suspect]
     Indication: B-CELL LYMPHOMA
     Route: 065
  35. VINCRISTINE [Suspect]
     Indication: B-CELL SMALL LYMPHOCYTIC LYMPHOMA
     Route: 065
  36. VINCRISTINE [Suspect]
     Indication: CHRONIC LYMPHOCYTIC LEUKAEMIA
     Route: 065
  37. VINCRISTINE [Suspect]
     Indication: LYMPHOMA
     Route: 065
  38. VINCRISTINE [Suspect]
     Indication: DIFFUSE LARGE B-CELL LYMPHOMA
     Route: 065
  39. VINCRISTINE [Suspect]
     Indication: NON-HODGKIN^S LYMPHOMA
     Route: 065
  40. VINCRISTINE [Suspect]
     Indication: ACUTE MYELOID LEUKAEMIA
     Route: 065
  41. PREDNISONE [Suspect]
     Indication: PLASMA CELL MYELOMA
     Route: 065
  42. PREDNISONE [Suspect]
     Indication: MANTLE CELL LYMPHOMA
     Route: 065
  43. PREDNISONE [Suspect]
     Indication: ACUTE LYMPHOCYTIC LEUKAEMIA
     Route: 065
  44. PREDNISONE [Suspect]
     Indication: B-CELL LYMPHOMA
     Route: 065
  45. PREDNISONE [Suspect]
     Indication: B-CELL SMALL LYMPHOCYTIC LYMPHOMA
     Route: 065
  46. PREDNISONE [Suspect]
     Indication: CHRONIC LYMPHOCYTIC LEUKAEMIA
     Route: 065
  47. PREDNISONE [Suspect]
     Indication: LYMPHOMA
     Route: 065
  48. PREDNISONE [Suspect]
     Indication: DIFFUSE LARGE B-CELL LYMPHOMA
     Route: 065
  49. PREDNISONE [Suspect]
     Indication: NON-HODGKIN^S LYMPHOMA
     Route: 065
  50. PREDNISONE [Suspect]
     Indication: ACUTE MYELOID LEUKAEMIA
     Route: 065
  51. BLEOMYCIN [Suspect]
     Indication: PLASMA CELL MYELOMA
     Route: 065
  52. BLEOMYCIN [Suspect]
     Indication: MANTLE CELL LYMPHOMA
     Route: 065
  53. BLEOMYCIN [Suspect]
     Indication: ACUTE LYMPHOCYTIC LEUKAEMIA
     Route: 065
  54. BLEOMYCIN [Suspect]
     Indication: B-CELL LYMPHOMA
     Route: 065
  55. BLEOMYCIN [Suspect]
     Indication: B-CELL SMALL LYMPHOCYTIC LYMPHOMA
     Route: 065
  56. BLEOMYCIN [Suspect]
     Indication: CHRONIC LYMPHOCYTIC LEUKAEMIA
     Route: 065
  57. BLEOMYCIN [Suspect]
     Indication: LYMPHOMA
     Route: 065
  58. BLEOMYCIN [Suspect]
     Indication: DIFFUSE LARGE B-CELL LYMPHOMA
     Route: 065
  59. BLEOMYCIN [Suspect]
     Indication: NON-HODGKIN^S LYMPHOMA
     Route: 065
  60. BLEOMYCIN [Suspect]
     Indication: ACUTE MYELOID LEUKAEMIA
     Route: 065
  61. ETOPOSIDE [Suspect]
     Indication: PLASMA CELL MYELOMA
     Route: 065
  62. ETOPOSIDE [Suspect]
     Indication: MANTLE CELL LYMPHOMA
     Route: 065
  63. ETOPOSIDE [Suspect]
     Indication: ACUTE LYMPHOCYTIC LEUKAEMIA
     Route: 065
  64. ETOPOSIDE [Suspect]
     Indication: B-CELL LYMPHOMA
     Route: 065
  65. ETOPOSIDE [Suspect]
     Indication: B-CELL SMALL LYMPHOCYTIC LYMPHOMA
     Route: 065
  66. ETOPOSIDE [Suspect]
     Indication: CHRONIC LYMPHOCYTIC LEUKAEMIA
     Route: 065
  67. ETOPOSIDE [Suspect]
     Indication: LYMPHOMA
     Route: 065
  68. ETOPOSIDE [Suspect]
     Indication: DIFFUSE LARGE B-CELL LYMPHOMA
     Route: 065
  69. ETOPOSIDE [Suspect]
     Indication: NON-HODGKIN^S LYMPHOMA
     Route: 065
  70. ETOPOSIDE [Suspect]
     Indication: ACUTE MYELOID LEUKAEMIA
     Route: 065
  71. PROCARBAZINE [Suspect]
     Indication: PLASMA CELL MYELOMA
     Route: 065
  72. PROCARBAZINE [Suspect]
     Indication: MANTLE CELL LYMPHOMA
     Route: 065
  73. PROCARBAZINE [Suspect]
     Indication: ACUTE LYMPHOCYTIC LEUKAEMIA
     Route: 065
  74. PROCARBAZINE [Suspect]
     Indication: B-CELL LYMPHOMA
     Route: 065
  75. PROCARBAZINE [Suspect]
     Indication: B-CELL SMALL LYMPHOCYTIC LYMPHOMA
     Route: 065
  76. PROCARBAZINE [Suspect]
     Indication: CHRONIC LYMPHOCYTIC LEUKAEMIA
     Route: 065
  77. PROCARBAZINE [Suspect]
     Indication: LYMPHOMA
     Route: 065
  78. PROCARBAZINE [Suspect]
     Indication: DIFFUSE LARGE B-CELL LYMPHOMA
     Route: 065
  79. PROCARBAZINE [Suspect]
     Indication: NON-HODGKIN^S LYMPHOMA
     Route: 065
  80. PROCARBAZINE [Suspect]
     Indication: ACUTE MYELOID LEUKAEMIA
     Route: 065
  81. CYCLOPHOSPHAMIDE [Suspect]
     Indication: PLASMA CELL MYELOMA
     Route: 065
  82. CYCLOPHOSPHAMIDE [Suspect]
     Indication: MANTLE CELL LYMPHOMA
     Route: 065
  83. CYCLOPHOSPHAMIDE [Suspect]
     Indication: ACUTE LYMPHOCYTIC LEUKAEMIA
     Route: 065
  84. CYCLOPHOSPHAMIDE [Suspect]
     Indication: B-CELL LYMPHOMA
     Route: 065
  85. CYCLOPHOSPHAMIDE [Suspect]
     Indication: B-CELL SMALL LYMPHOCYTIC LYMPHOMA
     Route: 065
  86. CYCLOPHOSPHAMIDE [Suspect]
     Indication: CHRONIC LYMPHOCYTIC LEUKAEMIA
     Route: 065
  87. CYCLOPHOSPHAMIDE [Suspect]
     Indication: LYMPHOMA
     Route: 065
  88. CYCLOPHOSPHAMIDE [Suspect]
     Indication: DIFFUSE LARGE B-CELL LYMPHOMA
     Route: 065
  89. CYCLOPHOSPHAMIDE [Suspect]
     Indication: NON-HODGKIN^S LYMPHOMA
     Route: 065
  90. CYCLOPHOSPHAMIDE [Suspect]
     Indication: ACUTE MYELOID LEUKAEMIA
     Route: 065

REACTIONS (22)
  - Sputum culture positive [Unknown]
  - Neoplasm recurrence [Fatal]
  - Lung disorder [Recovered/Resolved]
  - Respiratory failure [Fatal]
  - Red blood cell sedimentation rate increased [Unknown]
  - C-reactive protein increased [Unknown]
  - Blood lactate dehydrogenase increased [Unknown]
  - Respiratory failure [Unknown]
  - Candida infection [Unknown]
  - Acinetobacter infection [Unknown]
  - Klebsiella test positive [Unknown]
  - Bacterial test positive [Unknown]
  - Sputum culture positive [Unknown]
  - Aspergillus infection [Unknown]
  - Acinetobacter infection [Unknown]
  - Tuberculosis [Unknown]
  - Pneumocystis jirovecii infection [Unknown]
  - Cytomegalovirus infection [Unknown]
  - Pneumovirus test positive [Unknown]
  - Epstein-Barr virus infection [Unknown]
  - Enterovirus test positive [Unknown]
  - Coxsackie virus test positive [Unknown]
